FAERS Safety Report 5120617-9 (Version None)
Quarter: 2006Q3

REPORT INFORMATION
  Report Type: 
  Country: None (occurrence: None)
  Receive Date: 20060928
  Receipt Date: 20060915
  Transmission Date: 20061208
  Serious: Yes (Other)
  Sender: FDA-Public Use
  Company Number: 2006112052

PATIENT
  Sex: 0

DRUGS (1)
  1. HALCION [Suspect]
     Dosage: ORAL
     Route: 048

REACTIONS (7)
  - ABNORMAL BEHAVIOUR [None]
  - DYSCALCULIA [None]
  - ELECTROENCEPHALOGRAM ABNORMAL [None]
  - KIDNEY INFECTION [None]
  - OVERDOSE [None]
  - RETROGRADE AMNESIA [None]
  - SUICIDE ATTEMPT [None]
